FAERS Safety Report 5320154-2 (Version None)
Quarter: 2007Q2

REPORT INFORMATION
  Report Type: 
  Country: None (occurrence: None)
  Receive Date: 20070503
  Receipt Date: 20070423
  Transmission Date: 20071010
  Serious: Yes (Hospitalization)
  Sender: FDA-Public Use
  Company Number: 2007SP001472

PATIENT
  Age: 3 Year
  Sex: Female
  Weight: 21.3191 kg

DRUGS (4)
  1. XOPENEX [Suspect]
     Indication: ASTHMA
     Dosage: 1.25 MG/3ML; Q2H; INHALATION
     Route: 055
     Dates: start: 20060101
  2. SINGULAIR [Concomitant]
  3. ZYRTEC [Concomitant]
  4. STEROIDS [Concomitant]

REACTIONS (5)
  - ACCIDENTAL DRUG INTAKE BY CHILD [None]
  - BRONCHITIS [None]
  - CROUP INFECTIOUS [None]
  - EAR INFECTION [None]
  - PNEUMONIA [None]
